FAERS Safety Report 9683548 (Version 3)
Quarter: 2014Q2

REPORT INFORMATION
  Report Type: Spontaneous
  Country: FR (occurrence: FR)
  Receive Date: 20131112
  Receipt Date: 20140512
  Transmission Date: 20141212
  Serious: Yes (Hospitalization, Other)
  Sender: FDA-Public Use
  Company Number: PHHY2013FR127849

PATIENT
  Age: 75 Year
  Sex: Male

DRUGS (5)
  1. AMLODIPINE SANDOZ [Suspect]
     Dosage: 5 MG, QD
  2. PREDNISOLONE SANDOZ [Suspect]
     Dosage: 10 MG, QD
     Dates: start: 201303
  3. ZYTIGA [Concomitant]
     Indication: PRODUCT USED FOR UNKNOWN INDICATION
     Route: 065
  4. IRBESARTAN [Concomitant]
     Indication: PRODUCT USED FOR UNKNOWN INDICATION
  5. CHEMOTHERAPEUTICS [Concomitant]
     Indication: PROSTATE CANCER

REACTIONS (6)
  - Renal impairment [Not Recovered/Not Resolved]
  - Blood creatine [Not Recovered/Not Resolved]
  - Urinary tract infection [Not Recovered/Not Resolved]
  - Food interaction [Not Recovered/Not Resolved]
  - Sleep disorder [Not Recovered/Not Resolved]
  - Drug level increased [Unknown]
